FAERS Safety Report 5221924-1 (Version None)
Quarter: 2007Q1

REPORT INFORMATION
  Report Type: 
  Country: None (occurrence: None)
  Receive Date: 20070129
  Receipt Date: 20060118
  Transmission Date: 20070707
  Serious: Yes (Hospitalization)
  Sender: FDA-Public Use
  Company Number: US-GLAXOSMITHKLINE-A0588145A

PATIENT
  Age: 65 Year
  Sex: Male

DRUGS (3)
  1. WELLBUTRIN [Suspect]
     Indication: DEPRESSION
     Route: 048
  2. ALPRAZOLAM [Concomitant]
  3. LOTREL [Concomitant]

REACTIONS (2)
  - DEPRESSIVE SYMPTOM [None]
  - DRUG INEFFECTIVE [None]
